FAERS Safety Report 7325088-X (Version None)
Quarter: 2011Q1

REPORT INFORMATION
  Report Type: 
  Country: None (occurrence: None)
  Receive Date: 20110302
  Receipt Date: 20110222
  Transmission Date: 20110831
  Serious: Yes (Hospitalization)
  Sender: FDA-Public Use
  Company Number: US-BIOGENIDEC-2009BI037922

PATIENT
  Age: 67 Year
  Sex: Male
  Weight: 102 kg

DRUGS (3)
  1. NSAID (NOS) [Concomitant]
     Indication: ARTHRALGIA
  2. AVONEX [Suspect]
     Indication: MULTIPLE SCLEROSIS
     Route: 030
     Dates: start: 20090615, end: 20090601
  3. AVONEX [Suspect]
     Route: 030
     Dates: start: 20110220

REACTIONS (4)
  - GOUT [None]
  - INFLUENZA LIKE ILLNESS [None]
  - RENAL FAILURE ACUTE [None]
  - MENISCUS LESION [None]
